FAERS Safety Report 10276839 (Version 1)
Quarter: 2014Q3

REPORT INFORMATION
  Report Type: Spontaneous
  Country: US (occurrence: US)
  Receive Date: 20140703
  Receipt Date: 20140703
  Transmission Date: 20150326
  Serious: No
  Sender: FDA-Public Use
  Company Number: US-TARO-2013P1008867

PATIENT
  Sex: Female
  Weight: 90.72 kg

DRUGS (5)
  1. UNSPECIFIED PRESCRIPTION MEDICATION [Concomitant]
  2. UNSPECIFIED CARDIOMYOPATHY MEDICATION [Concomitant]
  3. CLOTRIMAZOLE/BETAMETHASONE DIPROPIONATE CREAM USP 1%/0.05% [Suspect]
     Active Substance: BETAMETHASONE DIPROPIONATE\CLOTRIMAZOLE
     Dosage: QD
     Route: 061
     Dates: start: 2011
  4. LASIX [Concomitant]
     Active Substance: FUROSEMIDE
     Dosage: 10 MG
  5. UNSPECIFIED VITAMINS [Concomitant]

REACTIONS (2)
  - Peripheral swelling [Recovering/Resolving]
  - Drug ineffective [Unknown]
